FAERS Safety Report 16591509 (Version 3)
Quarter: 2021Q2

REPORT INFORMATION
  Report Type: Report from Study
  Country: US (occurrence: US)
  Receive Date: 20190718
  Receipt Date: 20210628
  Transmission Date: 20210716
  Serious: Yes (Hospitalization, Other)
  Sender: FDA-Public Use
  Company Number: US-UCBSA-2019029813

PATIENT
  Age: 72 Year
  Sex: Female

DRUGS (6)
  1. LACOSAMIDE. [Suspect]
     Active Substance: LACOSAMIDE
     Indication: SEIZURE
  2. PHENOBARBITAL. [Concomitant]
     Active Substance: PHENOBARBITAL
     Indication: SEIZURE
     Dosage: UNK
  3. ASPIRIN [ACETYLSALICYLIC ACID] [Concomitant]
     Active Substance: ASPIRIN
     Indication: ANTICOAGULANT THERAPY
     Dosage: UNK
  4. LACOSAMIDE. [Suspect]
     Active Substance: LACOSAMIDE
     Indication: PARTIAL SEIZURES
     Dosage: 200 MILLIGRAM, 2X/DAY (BID)
     Route: 048
  5. LIPITOR [Concomitant]
     Active Substance: ATORVASTATIN CALCIUM
     Indication: PRODUCT USED FOR UNKNOWN INDICATION
     Dosage: UNK
  6. LOSARTAN. [Concomitant]
     Active Substance: LOSARTAN
     Indication: PRODUCT USED FOR UNKNOWN INDICATION
     Dosage: UNK

REACTIONS (7)
  - Cerebrovascular accident [Not Recovered/Not Resolved]
  - Intracardiac thrombus [Not Recovered/Not Resolved]
  - Confusional state [Not Recovered/Not Resolved]
  - Dyspnoea [Unknown]
  - Pulmonary thrombosis [Not Recovered/Not Resolved]
  - Anxiety [Unknown]
  - Dyscalculia [Not Recovered/Not Resolved]

NARRATIVE: CASE EVENT DATE: 201708
